FAERS Safety Report 8217329-1 (Version None)
Quarter: 2012Q1

REPORT INFORMATION
  Report Type: 
  Country: None (occurrence: None)
  Receive Date: 20120313
  Receipt Date: 20120228
  Transmission Date: 20120608
  Serious: Yes (Life-Threatening, Hospitalization, Disabling)
  Sender: FDA-Public Use
  Company Number: 2012030044

PATIENT
  Age: 87 Year
  Sex: Female

DRUGS (6)
  1. PLETAL [Concomitant]
  2. DORNER (BERAPROST SODIUM) [Concomitant]
  3. PAULUX (ALPROSTADIL) [Concomitant]
  4. ANPLAG (SARPOGRELATE HYDROCHLORIDE) [Suspect]
     Indication: PERIPHERAL ARTERIAL OCCLUSIVE DISEASE
     Dosage: (300 M), ORAL
     Route: 048
     Dates: start: 20101123
  5. TORSEMIDE [Suspect]
     Indication: OEDEMA
     Dosage: 8 MG (8 MG, 1 IN 1 D), ORAL
     Route: 048
     Dates: start: 20101206, end: 20101224
  6. NORVASC [Suspect]
     Indication: HYPERTENSION
     Dosage: (7.5 MG), ORAL
     Route: 048

REACTIONS (7)
  - LEG AMPUTATION [None]
  - GAIT DISTURBANCE [None]
  - HYPOAESTHESIA [None]
  - FEELING COLD [None]
  - INTERMITTENT CLAUDICATION [None]
  - PAIN [None]
  - OEDEMA [None]
